FAERS Safety Report 8232254-8 (Version None)
Quarter: 2012Q1

REPORT INFORMATION
  Report Type: 
  Country: None (occurrence: None)
  Receive Date: 20120323
  Receipt Date: 20120314
  Transmission Date: 20120608
  Serious: Yes (Hospitalization, Other)
  Sender: FDA-Public Use
  Company Number: US-ACTELION-A-US2011-47828

PATIENT

DRUGS (1)
  1. TRACLEER [Suspect]
     Indication: PULMONARY ARTERIAL HYPERTENSION
     Dosage: UNK
     Route: 048
     Dates: start: 20110331

REACTIONS (7)
  - GAIT DISTURBANCE [None]
  - FATIGUE [None]
  - CHEST PAIN [None]
  - POST PROCEDURAL INFECTION [None]
  - KNEE ARTHROPLASTY [None]
  - HEPATIC STEATOSIS [None]
  - PAIN [None]
